FAERS Safety Report 11865318 (Version 2)
Quarter: 2016Q1

REPORT INFORMATION
  Report Type: Spontaneous
  Country: US (occurrence: US)
  Receive Date: 20151223
  Receipt Date: 20160113
  Transmission Date: 20160526
  Serious: Yes (Hospitalization)
  Sender: FDA-Public Use
  Company Number: US-FRESENIUS KABI-FK201506797

PATIENT
  Age: 49 Year
  Sex: Male

DRUGS (6)
  1. MESNA. [Concomitant]
     Active Substance: MESNA
     Route: 048
  2. PACLITAXEL (MANUFACTURER UNKNOWN) [Suspect]
     Active Substance: PACLITAXEL
     Indication: ANAL CANCER STAGE III
     Route: 065
  3. MESNA. [Concomitant]
     Active Substance: MESNA
     Indication: ANAL CANCER STAGE III
     Route: 042
  4. PEGFILGRASTIM [Concomitant]
     Active Substance: PEGFILGRASTIM
     Indication: ANAL CANCER STAGE III
     Route: 058
  5. CISPLATIN (MANUFACTURER UNKNOWN) [Suspect]
     Active Substance: CISPLATIN
     Indication: ANAL CANCER STAGE III
     Route: 065
  6. IFOSFAMIDE (MANUFACTURER UNKNOWN) [Suspect]
     Active Substance: IFOSFAMIDE
     Indication: ANAL CANCER STAGE III
     Route: 065

REACTIONS (4)
  - Fatigue [Unknown]
  - Febrile neutropenia [Unknown]
  - Alopecia [Unknown]
  - Rectal abscess [Unknown]
